FAERS Safety Report 7057940-7 (Version None)
Quarter: 2010Q4

REPORT INFORMATION
  Report Type: 
  Country: None (occurrence: None)
  Receive Date: 20101022
  Receipt Date: 20101011
  Transmission Date: 20110411
  Serious: Yes (Other)
  Sender: FDA-Public Use
  Company Number: US-PFIZER INC-2007086207

PATIENT
  Sex: Female
  Weight: 68.2 kg

DRUGS (11)
  1. LYRICA [Interacting]
     Indication: HERPES ZOSTER
     Dosage: 75 MG, 2X/DAY
     Dates: start: 20071004
  2. METHADONE HYDROCHLORIDE [Interacting]
     Dosage: UNK
  3. PERCOCET [Suspect]
     Dosage: UNK
  4. ACETYLSALICYLIC ACID SRT [Concomitant]
  5. VITAMINS [Concomitant]
  6. LIPITOR [Concomitant]
     Indication: BLOOD CHOLESTEROL ABNORMAL
  7. ATENOLOL [Concomitant]
  8. MIRALAX [Concomitant]
  9. LYSINE [Concomitant]
     Dates: start: 20071005
  10. ACIDOPHILUS [Concomitant]
     Dates: start: 20071005
  11. VICODIN [Concomitant]
     Dosage: UNK

REACTIONS (36)
  - ABDOMINAL DISCOMFORT [None]
  - ACTIVITIES OF DAILY LIVING IMPAIRED [None]
  - ALOPECIA [None]
  - ASTHENIA [None]
  - CHILLS [None]
  - COGNITIVE DISORDER [None]
  - COMMUNICATION DISORDER [None]
  - CONSTIPATION [None]
  - CRYING [None]
  - DECREASED APPETITE [None]
  - DEPENDENCE [None]
  - DEPRESSED LEVEL OF CONSCIOUSNESS [None]
  - DIZZINESS [None]
  - DRUG INEFFECTIVE [None]
  - DRUG INTERACTION [None]
  - ERYTHEMA [None]
  - FEELING ABNORMAL [None]
  - FEELING DRUNK [None]
  - GAIT DISTURBANCE [None]
  - GALLBLADDER OPERATION [None]
  - HYPERHIDROSIS [None]
  - HYPOAESTHESIA [None]
  - ILL-DEFINED DISORDER [None]
  - INFLUENZA LIKE ILLNESS [None]
  - INSOMNIA [None]
  - JOINT SWELLING [None]
  - MENTAL IMPAIRMENT [None]
  - NAIL GROWTH ABNORMAL [None]
  - NERVOUSNESS [None]
  - OEDEMA MOUTH [None]
  - OEDEMA PERIPHERAL [None]
  - ORAL MUCOSAL DISCOLOURATION [None]
  - PAIN [None]
  - PAIN IN EXTREMITY [None]
  - SOMNOLENCE [None]
  - SWELLING [None]
